FAERS Safety Report 8056577-0 (Version None)
Quarter: 2012Q1

REPORT INFORMATION
  Report Type: 
  Country: None (occurrence: None)
  Receive Date: 20120119
  Receipt Date: 20110721
  Transmission Date: 20120608
  Serious: Yes (Other)
  Sender: FDA-Public Use
  Company Number: PHHY2011KR66898

PATIENT

DRUGS (1)
  1. METHOTREXATE [Suspect]

REACTIONS (4)
  - HEMIPLEGIA [None]
  - POSTERIOR REVERSIBLE ENCEPHALOPATHY SYNDROME [None]
  - ASTHENIA [None]
  - DYSARTHRIA [None]
